FAERS Safety Report 4883180-3 (Version None)
Quarter: 2006Q1

REPORT INFORMATION
  Report Type: 
  Country: None (occurrence: None)
  Receive Date: 20060118
  Receipt Date: 20060103
  Transmission Date: 20060701
  Serious: Yes (Other)
  Sender: FDA-Public Use
  Company Number: GB-JNJFOC-20060100438

PATIENT
  Sex: Male

DRUGS (1)
  1. CONCERTA [Suspect]
     Route: 048

REACTIONS (1)
  - GLAUCOMA [None]
